FAERS Safety Report 6256584-4 (Version None)
Quarter: 2009Q3

REPORT INFORMATION
  Report Type: 
  Country: None (occurrence: None)
  Receive Date: 20090706
  Receipt Date: 20090618
  Transmission Date: 20100115
  Serious: No
  Sender: FDA-Public Use
  Company Number: US-BAYER-200924040NA

PATIENT
  Age: 17 Year
  Sex: Female
  Weight: 109 kg

DRUGS (1)
  1. YAZ [Suspect]
     Indication: CONTRACEPTION
     Dosage: 1 TAB / DAY
     Route: 048
     Dates: start: 20090401, end: 20090612

REACTIONS (1)
  - PREGNANCY ON ORAL CONTRACEPTIVE [None]
